FAERS Safety Report 8332310-X (Version None)
Quarter: 2012Q2

REPORT INFORMATION
  Report Type: 
  Country: None (occurrence: None)
  Receive Date: 20120503
  Receipt Date: 20120426
  Transmission Date: 20120825
  Serious: No
  Sender: FDA-Public Use
  Company Number: US-BIOGENIDEC-2012BI014617

PATIENT
  Sex: Female

DRUGS (2)
  1. AVONEX [Suspect]
     Indication: MULTIPLE SCLEROSIS
     Route: 030
     Dates: start: 20100101, end: 20100531
  2. SLEEPING PILLS (NOS) [Concomitant]
     Indication: INSOMNIA

REACTIONS (3)
  - LETHARGY [None]
  - DEPRESSION SUICIDAL [None]
  - NIGHTMARE [None]
